FAERS Safety Report 23695126 (Version 1)
Quarter: 2024Q2

REPORT INFORMATION
  Report Type: Spontaneous
  Country: US (occurrence: US)
  Receive Date: 20240402
  Receipt Date: 20240402
  Transmission Date: 20240716
  Serious: No
  Sender: FDA-Public Use
  Company Number: US-PADAGIS-2024PAD00422

PATIENT

DRUGS (1)
  1. ESTRADIOL VAGINAL [Suspect]
     Active Substance: ESTRADIOL
     Indication: Product used for unknown indication
     Dosage: 0.25 G WEEKLY TWICE
     Route: 065
     Dates: start: 20230410

REACTIONS (3)
  - Underdose [Unknown]
  - Product cleaning inadequate [Unknown]
  - Product colour issue [Unknown]
